FAERS Safety Report 16235934 (Version 1)
Quarter: 2019Q2

REPORT INFORMATION
  Report Type: Spontaneous
  Country: BR (occurrence: BR)
  Receive Date: 20190425
  Receipt Date: 20190425
  Transmission Date: 20190711
  Serious: Yes (Hospitalization)
  Sender: FDA-Public Use
  Company Number: BR-ROCHE-2306518

PATIENT
  Age: 40 Year
  Sex: Female

DRUGS (1)
  1. MABTHERA [Suspect]
     Active Substance: RITUXIMAB
     Indication: BEHCET^S SYNDROME
     Route: 065

REACTIONS (7)
  - Gingival bleeding [Unknown]
  - Gastrointestinal haemorrhage [Unknown]
  - Intentional product use issue [Unknown]
  - Ecchymosis [Unknown]
  - Haemorrhage urinary tract [Unknown]
  - Off label use [Unknown]
  - Unevaluable event [Unknown]
